FAERS Safety Report 6679445-5 (Version None)
Quarter: 2010Q2

REPORT INFORMATION
  Report Type: 
  Country: None (occurrence: None)
  Receive Date: 20100413
  Receipt Date: 20100406
  Transmission Date: 20101027
  Serious: Yes (Hospitalization)
  Sender: FDA-Public Use
  Company Number: FR-ROCHE-696295

PATIENT
  Sex: Male
  Weight: 23.6 kg

DRUGS (5)
  1. BEVACIZUMAB [Suspect]
     Indication: SARCOMA METASTATIC
     Dosage: LAST DOSE PRIOR TO SAE: 22 MARCH 2010. DOSAGE FORM REPORTED AS: 7.5 MG/KG
     Route: 042
     Dates: start: 20100322
  2. ACTINOMYCIN D [Suspect]
     Indication: SARCOMA METASTATIC
     Dosage: LAST DOSE PRIOR TO SAE: 22 MARCH 2010. DOSAGE FORM: 1.5 MG/M2,  DRUG: ACYINOMYCIN D.
     Route: 042
     Dates: start: 20100322
  3. DOXORUBICIN HCL [Suspect]
     Indication: SARCOMA METASTATIC
     Dosage: LAST DOSE PRIOR TO SAE: 23 MARCH 2010. DOSAGE FORM: 60MG/M2
     Route: 042
     Dates: start: 20100322
  4. IFOSFAMIDE [Suspect]
     Indication: SARCOMA METASTATIC
     Dosage: DOSE: 2GM X 2 DAYS, 5.8GM.  LAST DOSE PRIOR TO SAE: 23 MARCH 2010. DOSAGE FORM: 6G/M2
     Route: 042
     Dates: start: 20100322
  5. VINCRISTINE [Suspect]
     Indication: SARCOMA METASTATIC
     Dosage: LAST DOSE PRIOR TO SAE: 22 MARCH 2010. DOSAGE FORM: 1.5MG/M2
     Route: 042
     Dates: start: 20100322

REACTIONS (1)
  - MUCOSAL INFLAMMATION [None]
